FAERS Safety Report 9693369 (Version 3)
Quarter: 2014Q1

REPORT INFORMATION
  Report Type: Report from Study
  Country: DE (occurrence: DE)
  Receive Date: 20131118
  Receipt Date: 20140318
  Transmission Date: 20141002
  Serious: Yes (Hospitalization)
  Sender: FDA-Public Use
  Company Number: DE-ROCHE-1293753

PATIENT
  Age: 70 Year
  Sex: Male
  Weight: 116.1 kg

DRUGS (1)
  1. VEMURAFENIB [Suspect]
     Indication: METASTATIC MALIGNANT MELANOMA
     Route: 048

REACTIONS (1)
  - Stasis dermatitis [Recovered/Resolved with Sequelae]
